FAERS Safety Report 17052762 (Version 1)
Quarter: 2019Q4

REPORT INFORMATION
  Report Type: Spontaneous
  Country: US (occurrence: US)
  Receive Date: 20191119
  Receipt Date: 20191119
  Transmission Date: 20200122
  Serious: Yes (Other)
  Sender: FDA-Public Use
  Company Number: None

PATIENT
  Age: 37 Year
  Sex: Female
  Weight: 59 kg

DRUGS (8)
  1. VITAMIN D3 [Concomitant]
     Active Substance: CHOLECALCIFEROL
  2. BOTOX [Suspect]
     Active Substance: ONABOTULINUMTOXINA
     Dates: start: 20191012
  3. MAGNESIUM [Concomitant]
     Active Substance: MAGNESIUM
  4. IRON [Concomitant]
     Active Substance: IRON
  5. ZINC. [Concomitant]
     Active Substance: ZINC
  6. POTASSIUM [Concomitant]
     Active Substance: POTASSIUM
  7. FOLIC ACID. [Concomitant]
     Active Substance: FOLIC ACID
  8. CALCIUM [Concomitant]
     Active Substance: CALCIUM

REACTIONS (6)
  - Headache [None]
  - Palpitations [None]
  - Muscle twitching [None]
  - Lacrimation increased [None]
  - Fatigue [None]
  - Eye pruritus [None]

NARRATIVE: CASE EVENT DATE: 20191012
